FAERS Safety Report 16851727 (Version 10)
Quarter: 2020Q2

REPORT INFORMATION
  Report Type: Report from Study
  Country: None (occurrence: ES)
  Receive Date: 20190925
  Receipt Date: 20200403
  Transmission Date: 20200713
  Serious: Yes (Hospitalization, Other)
  Sender: FDA-Public Use
  Company Number: ES-ABBVIE-19K-144-2937726-00

PATIENT
  Age: 73 Year
  Sex: Male
  Weight: 103 kg

DRUGS (1)
  1. DUODOPA [Suspect]
     Active Substance: CARBIDOPA\LEVODOPA
     Indication: PARKINSON^S DISEASE
     Route: 050
     Dates: start: 20181115

REACTIONS (6)
  - Nasopharyngitis [Recovered/Resolved]
  - Glioblastoma multiforme [Not Recovered/Not Resolved]
  - Dyskinesia [Recovered/Resolved]
  - Device dislocation [Not Recovered/Not Resolved]
  - Brain neoplasm [Recovered/Resolved]
  - Exercise lack of [Unknown]

NARRATIVE: CASE EVENT DATE: 2019
